FAERS Safety Report 4815452-2 (Version None)
Quarter: 2005Q4

REPORT INFORMATION
  Report Type: 
  Country: None (occurrence: None)
  Receive Date: 20051027
  Receipt Date: 20051027
  Transmission Date: 20060501
  Serious: Yes (Hospitalization, Other)
  Sender: FDA-Public Use
  Company Number: None

PATIENT
  Sex: Male
  Weight: 82 kg

DRUGS (16)
  1. CYCLOPHOSPHAMIDE [Suspect]
     Indication: ACUTE LYMPHOCYTIC LEUKAEMIA
     Dosage: SEE IMAGE
     Route: 042
     Dates: start: 20051007
  2. ALLOPURINOL [Concomitant]
     Dosage: SEE IMAGE
     Route: 048
  3. DAUNORUBICIN [Suspect]
     Dosage: SEE IMAGE
     Route: 042
  4. VINCRISTINE [Suspect]
     Dosage: SEE IMAGE
     Route: 042
  5. DEXAMETHASONE [Suspect]
     Dosage: SEE IMAGE
     Route: 048
  6. L-ASPARAGINASE [Suspect]
     Dosage: SEE IMAGE
     Route: 058
  7. G-CSF [Suspect]
     Dosage: SEE IMAGE
     Route: 058
  8. GLEEVEC [Suspect]
     Dosage: SEE IMAGE
     Route: 048
  9. METHOTREXATE [Suspect]
     Dosage: SEE IMAGE
  10. CYCLOPHOSPHAMIDE [Suspect]
     Dosage: SEE IMAGE
     Route: 042
  11. CYTARABINE [Suspect]
     Dosage: SEE IMAGE
     Route: 042
  12. L-ASPARAGINASE [Suspect]
     Dosage: SEE IMAGE
     Route: 058
  13. DEXAMETHASONE [Suspect]
     Dosage: SEE IMAGE
     Route: 058
  14. DEXAMETHASONE [Suspect]
     Dosage: SEE IMAGE
  15. G-SCF [Suspect]
     Dosage: SEE IMAGE
     Route: 058
  16. HYDROCORTISONE [Suspect]
     Dosage: SEE IMAGE
     Route: 037

REACTIONS (1)
  - FEBRILE NEUTROPENIA [None]
